FAERS Safety Report 8812813 (Version 1)
Quarter: 2012Q4

REPORT INFORMATION
  Report Type: 
  Country: US (occurrence: US)
  Receive Date: 20120927
  Receipt Date: 20120927
  Transmission Date: 20130627
  Serious: No
  Sender: FDA-Public Use
  Company Number: US-AMGEN-USASP2012053295

PATIENT
  Age: 56 Year
  Sex: Male
  Weight: 85.5 kg

DRUGS (10)
  1. XGEVA [Suspect]
     Indication: METASTASES TO BONE
     Dosage: 120 mg, q4wk
     Route: 058
     Dates: start: 20120223
  2. VITAMIN D [Concomitant]
     Dosage: UNK
  3. CALCIUM [Concomitant]
     Dosage: UNK
  4. JEVTANA [Concomitant]
     Indication: PROSTATE CANCER
     Dosage: 39 mg, UNK
     Route: 042
     Dates: start: 20120521
  5. BENICAR [Concomitant]
     Indication: HYPERTENSION
     Dosage: 40 mg, qd
     Route: 048
  6. BENICAR [Concomitant]
     Dosage: 125 MBq, qd
     Route: 048
  7. BYSTOLIC [Concomitant]
     Dosage: 10 mg, qd
     Route: 048
  8. CALCIUM + VITAMIN D [Concomitant]
     Dosage: UNK UNK, qd
     Route: 048
  9. CALCIUM + VITAMIN D [Concomitant]
     Dosage: UNK UNK, qd
     Route: 048
  10. ELIGARD [Concomitant]
     Dosage: 7.5 mg, q3mo
     Route: 030

REACTIONS (1)
  - Hypocalcaemia [Not Recovered/Not Resolved]
